FAERS Safety Report 7683287-1 (Version None)
Quarter: 2011Q3

REPORT INFORMATION
  Report Type: 
  Country: None (occurrence: None)
  Receive Date: 20110815
  Receipt Date: 20110811
  Transmission Date: 20111222
  Serious: Yes (Other)
  Sender: FDA-Public Use
  Company Number: US-GLAXOSMITHKLINE-A0929299A

PATIENT
  Age: 29 Year
  Sex: Male

DRUGS (4)
  1. VENTOLIN HFA [Concomitant]
  2. CETIRIZINE HYDROCHLORIDE [Concomitant]
  3. ADVAIR DISKUS 100/50 [Suspect]
     Indication: ASTHMA
     Dosage: 2PUFF TWICE PER DAY
     Route: 055
     Dates: start: 20101018
  4. IBUPROFEN [Concomitant]

REACTIONS (10)
  - FATIGUE [None]
  - CHEST DISCOMFORT [None]
  - DIZZINESS [None]
  - OVERDOSE [None]
  - ASTHMA [None]
  - PAROSMIA [None]
  - PRODUCT QUALITY ISSUE [None]
  - THROAT TIGHTNESS [None]
  - INSOMNIA [None]
  - DYSPNOEA [None]
